FAERS Safety Report 5640387-5 (Version None)
Quarter: 2008Q1

REPORT INFORMATION
  Report Type: 
  Country: None (occurrence: None)
  Receive Date: 20080227
  Receipt Date: 20080124
  Transmission Date: 20080703
  Serious: No
  Sender: FDA-Public Use
  Company Number: US-BAXTER-2008BH000736

PATIENT
  Age: 55 Year
  Sex: Female

DRUGS (17)
  1. HEPARIN SODIUM [Suspect]
     Indication: PROPHYLAXIS
     Dosage: DOSE UNIT:CUBIC CENTIMETER
     Route: 033
  2. HEPARIN SODIUM [Suspect]
     Dosage: DOSE UNIT:CUBIC CENTIMETER
     Route: 033
     Dates: end: 20080101
  3. HEPARIN SODIUM [Suspect]
     Dosage: DOSE UNIT:CUBIC CENTIMETER
     Route: 033
     Dates: start: 20080101
  4. DIANEAL [Concomitant]
     Indication: RENAL FAILURE CHRONIC
     Dosage: DOSE UNIT:UNKNOWN
     Route: 048
  5. NORVASC [Concomitant]
     Indication: HYPERTENSION
     Dosage: DOSE UNIT:UNKNOWN
     Route: 048
  6. LOPRESSOR [Concomitant]
     Indication: HYPERTENSION
     Dosage: DOSE UNIT:UNKNOWN
     Route: 048
  7. LIPITOR [Concomitant]
     Indication: CORONARY ARTERY DISEASE
     Dosage: DOSE UNIT:UNKNOWN
     Route: 048
  8. LISINOPRIL [Concomitant]
     Indication: HYPERTENSION
     Dosage: DOSE UNIT:UNKNOWN
     Route: 048
  9. TOPROL-XL [Concomitant]
     Indication: CORONARY ARTERY DISEASE
     Dosage: DOSE UNIT:UNKNOWN
     Route: 048
  10. AMIODARONE HCL [Concomitant]
     Indication: CORONARY ARTERY DISEASE
     Dosage: DOSE UNIT:UNKNOWN
     Route: 048
  11. ISOSORBIDE DINITRATE [Concomitant]
     Indication: CORONARY ARTERY DISEASE
     Dosage: DOSE UNIT:UNKNOWN
     Route: 048
  12. PLAVIX [Concomitant]
     Indication: CORONARY ARTERY DISEASE
     Dosage: DOSE UNIT:UNKNOWN
     Route: 048
  13. EPOGEN [Concomitant]
     Indication: RENAL FAILURE CHRONIC
     Dosage: DOSE UNIT:UNKNOWN
     Route: 048
  14. RENAGEL [Concomitant]
     Indication: RENAL FAILURE CHRONIC
     Dosage: DOSE UNIT:UNKNOWN
     Route: 048
  15. RENAL CAPS [Concomitant]
     Indication: RENAL FAILURE CHRONIC
     Dosage: DOSE UNIT:UNKNOWN
     Route: 048
  16. BENADRYL [Concomitant]
     Indication: PRURITUS
     Dosage: DOSE UNIT:UNKNOWN
     Route: 048
  17. CAPTOPRIL [Concomitant]
     Indication: CORONARY ARTERY DISEASE
     Dosage: DOSE UNIT:UNKNOWN
     Route: 048

REACTIONS (2)
  - ABDOMINAL PAIN [None]
  - VOMITING [None]
